FAERS Safety Report 9567079 (Version 3)
Quarter: 2015Q4

REPORT INFORMATION
  Report Type: Report from Study
  Country: US (occurrence: US)
  Receive Date: 20130930
  Receipt Date: 20151230
  Transmission Date: 20160305
  Serious: Yes (Other)
  Sender: FDA-Public Use
  Company Number: US-AMGEN-USASP2012061187

PATIENT
  Age: 59 Year
  Sex: Female

DRUGS (6)
  1. OXYCONTIN [Suspect]
     Active Substance: OXYCODONE HYDROCHLORIDE
     Indication: PAIN
     Dosage: UNK
     Route: 065
  2. VITAMIN D                          /00107901/ [Concomitant]
     Active Substance: ERGOCALCIFEROL
     Dosage: UNK
  3. PROTONIX                           /00661201/ [Concomitant]
     Active Substance: OMEPRAZOLE
     Dosage: UNK
  4. PREDNISONE. [Concomitant]
     Active Substance: PREDNISONE
     Dosage: 5 MG, QD
  5. ENBREL [Suspect]
     Active Substance: ETANERCEPT
     Indication: RHEUMATOID ARTHRITIS
     Dosage: 50 MG, QWK
     Route: 065
     Dates: start: 19981201
  6. NABUMETONE. [Concomitant]
     Active Substance: NABUMETONE
     Dosage: 500 MG, UNK

REACTIONS (21)
  - Nausea [Unknown]
  - Gastrointestinal motility disorder [Unknown]
  - Heart rate increased [Unknown]
  - Gait disturbance [Unknown]
  - Dry mouth [Unknown]
  - Contusion [Not Recovered/Not Resolved]
  - Asthenia [Unknown]
  - Musculoskeletal pain [Not Recovered/Not Resolved]
  - Fear [Unknown]
  - Rheumatoid arthritis [Not Recovered/Not Resolved]
  - Fall [Not Recovered/Not Resolved]
  - Skin abrasion [Not Recovered/Not Resolved]
  - Tremor [Unknown]
  - Anxiety [Unknown]
  - Wound [Unknown]
  - Inappropriate schedule of drug administration [Unknown]
  - C-reactive protein abnormal [Unknown]
  - Malaise [Unknown]
  - Abasia [Unknown]
  - Micturition disorder [Unknown]
  - Nervousness [Unknown]

NARRATIVE: CASE EVENT DATE: 201203
